FAERS Safety Report 12622016 (Version 6)
Quarter: 2019Q2

REPORT INFORMATION
  Report Type: Spontaneous
  Country: US (occurrence: US)
  Receive Date: 20160804
  Receipt Date: 20190510
  Transmission Date: 20190711
  Serious: No
  Sender: FDA-Public Use
  Company Number: US-PFIZER INC-2016348572

PATIENT
  Age: 56 Year
  Sex: Male
  Weight: 122 kg

DRUGS (10)
  1. FENTANYL. [Concomitant]
     Active Substance: FENTANYL
     Dosage: 100MCG PATCH APPLIED EVERY 72 HOURS
  2. HYDROCODONE [Concomitant]
     Active Substance: HYDROCODONE
     Dosage: UNK (1000/325) (12 HOUR PERIOD)
  3. FLECTOR [Suspect]
     Active Substance: DICLOFENAC EPOLAMINE
     Dosage: 1 DF, 2X/DAY (FLECTOR 1.3 % 1 PATCH BID)
     Route: 062
     Dates: start: 20160525
  4. LYRICA [Concomitant]
     Active Substance: PREGABALIN
     Dosage: 50 MG, 3X/DAY
     Route: 048
     Dates: start: 2014
  5. FLECTOR [Suspect]
     Active Substance: DICLOFENAC EPOLAMINE
     Dosage: UNK, 2X/DAY (ONE PATCH, EVERY 12 HOURS)
     Route: 062
     Dates: start: 201903
  6. FENTANYL. [Concomitant]
     Active Substance: FENTANYL
     Dosage: 150 MG, DAILY (ONE WAS 100MG AND THE OTHER WAS 50MG)
  7. HYDROCODONE [Concomitant]
     Active Substance: HYDROCODONE
     Dosage: 10/325MG TABLET AS NEEDED
     Route: 048
     Dates: start: 2010
  8. FLECTOR [Suspect]
     Active Substance: DICLOFENAC EPOLAMINE
     Indication: PAIN
     Dosage: 1 DF, 2X/DAY (1.3% PATCH APPLIED EVERY 12 HOURS)
     Route: 062
     Dates: start: 20160709
  9. FENTANYL. [Concomitant]
     Active Substance: FENTANYL
     Dosage: 50 UG, UNK
  10. CYMBALTA [Concomitant]
     Active Substance: DULOXETINE HYDROCHLORIDE
     Dosage: 20 MG, 1X/DAY
     Route: 048
     Dates: start: 2014

REACTIONS (3)
  - Neuralgia [Unknown]
  - Myalgia [Unknown]
  - Fatigue [Unknown]
